FAERS Safety Report 21059163 (Version 1)
Quarter: 2022Q3

REPORT INFORMATION
  Report Type: Spontaneous
  Country: US (occurrence: US)
  Receive Date: 20220708
  Receipt Date: 20220708
  Transmission Date: 20221027
  Serious: No
  Sender: FDA-Public Use
  Company Number: US-PFIZER INC-202200938537

PATIENT
  Age: 51 Year
  Sex: Female

DRUGS (1)
  1. IBRANCE [Suspect]
     Active Substance: PALBOCICLIB
     Dosage: 75 MG, CYCLIC (TAKE 1 TABLET DAILY FOR 21 DAYS ON AND 7 DAYS OFF)
     Dates: start: 20160715

REACTIONS (4)
  - Intentional dose omission [Unknown]
  - COVID-19 [Unknown]
  - Limb injury [Unknown]
  - Illness [Unknown]
